FAERS Safety Report 10459489 (Version 1)
Quarter: 2014Q3

REPORT INFORMATION
  Report Type: Report from Study
  Country: US (occurrence: US)
  Receive Date: 20140917
  Receipt Date: 20140917
  Transmission Date: 20150326
  Serious: Yes (Other)
  Sender: FDA-Public Use
  Company Number: PHEH2014US018263

PATIENT
  Sex: Female

DRUGS (8)
  1. ASPIRIN. [Concomitant]
     Active Substance: ASPIRIN
     Indication: CHRONIC MYELOID LEUKAEMIA
  2. ASPIRIN. [Concomitant]
     Active Substance: ASPIRIN
     Indication: WHITE BLOOD CELL DISORDER
  3. LEVOTHYROXINE [Concomitant]
     Active Substance: LEVOTHYROXINE
     Indication: CHRONIC MYELOID LEUKAEMIA
  4. PAXIL [Concomitant]
     Active Substance: PAROXETINE HYDROCHLORIDE
     Indication: WHITE BLOOD CELL DISORDER
  5. PAXIL [Concomitant]
     Active Substance: PAROXETINE HYDROCHLORIDE
     Indication: CHRONIC MYELOID LEUKAEMIA
  6. LEVOTHYROXINE [Concomitant]
     Active Substance: LEVOTHYROXINE
     Indication: WHITE BLOOD CELL DISORDER
  7. TASIGNA [Suspect]
     Active Substance: NILOTINIB
     Indication: WHITE BLOOD CELL DISORDER
  8. TASIGNA [Suspect]
     Active Substance: NILOTINIB
     Indication: CHRONIC MYELOID LEUKAEMIA
     Dosage: 150 MG, BID
     Route: 048

REACTIONS (8)
  - Hyperhidrosis [Unknown]
  - Musculoskeletal chest pain [Unknown]
  - Anxiety [Unknown]
  - Contusion [Unknown]
  - Thrombocytosis [Unknown]
  - Hypoaesthesia [Unknown]
  - Leukocytosis [Unknown]
  - Dizziness [Unknown]
